FAERS Safety Report 14727265 (Version 1)
Quarter: 2018Q2

REPORT INFORMATION
  Report Type: Spontaneous
  Country: US (occurrence: US)
  Receive Date: 20180406
  Receipt Date: 20180406
  Transmission Date: 20180711
  Serious: Yes (Other)
  Sender: FDA-Public Use
  Company Number: US-GLAXOSMITHKLINE-US2018GSK058384

PATIENT

DRUGS (1)
  1. IMITREX [Suspect]
     Active Substance: SUMATRIPTAN SUCCINATE
     Route: 042

REACTIONS (1)
  - Anaphylactic reaction [Unknown]
